FAERS Safety Report 9677166 (Version 1)
Quarter: 2013Q4

REPORT INFORMATION
  Report Type: Report from Study
  Country: US (occurrence: US)
  Receive Date: 20131108
  Receipt Date: 20131108
  Transmission Date: 20140711
  Serious: Yes (Hospitalization)
  Sender: FDA-Public Use
  Company Number: US-BRISTOL-MYERS SQUIBB COMPANY-19703974

PATIENT
  Age: 71 Year
  Sex: Male

DRUGS (11)
  1. BLINDED: IPILIMUMAB [Suspect]
     Indication: NON-SMALL CELL LUNG CANCER
     Route: 042
     Dates: start: 20130719, end: 20131004
  2. CARBOPLATIN [Suspect]
     Indication: NON-SMALL CELL LUNG CANCER
     Dosage: 850MGX2DOSES?900MGX3DOSES?750MGX1DOSES
     Route: 042
     Dates: start: 20130607, end: 20131004
  3. PACLITAXEL [Suspect]
     Indication: NON-SMALL CELL LUNG CANCER
     Dosage: 380MGX5DOSES?318MGX1DOSES
     Route: 042
     Dates: start: 20130607, end: 20131004
  4. BLINDED: PLACEBO [Suspect]
     Indication: NON-SMALL CELL LUNG CANCER
  5. ASPIRIN [Concomitant]
     Indication: CARDIAC DISORDER
     Route: 048
     Dates: start: 2010
  6. FISH OIL [Concomitant]
     Indication: DYSLIPIDAEMIA
     Route: 048
     Dates: start: 2010
  7. MULTIVITAMIN [Concomitant]
     Indication: VITAMIN SUPPLEMENTATION
     Dosage: 1DF: 1 TABLET
     Route: 048
     Dates: start: 20130523
  8. HYDROCODONE + ACETAMINOPHEN [Concomitant]
     Indication: BACK PAIN
     Dosage: 1DF: 7.5MG/500MG
     Route: 048
     Dates: start: 20120820
  9. PREDNISONE [Concomitant]
     Indication: DIARRHOEA
     Route: 048
  10. LOMOTIL [Concomitant]
     Indication: DIARRHOEA
     Dosage: 2.5 MG
     Route: 048
     Dates: start: 20130820
  11. OFLOXACIN [Concomitant]
     Indication: CONJUNCTIVITIS BACTERIAL
     Dates: start: 20130804

REACTIONS (1)
  - Pneumonia [Not Recovered/Not Resolved]
